FAERS Safety Report 15384408 (Version 1)
Quarter: 2018Q3

REPORT INFORMATION
  Report Type: Spontaneous
  Country: US (occurrence: US)
  Receive Date: 20180907
  Receipt Date: 20180907
  Transmission Date: 20181010
  Serious: No
  Sender: FDA-Public Use
  Company Number: None

PATIENT
  Age: 64 Year
  Sex: Female

DRUGS (1)
  1. FORTEO [Suspect]
     Active Substance: TERIPARATIDE
     Indication: ILL-DEFINED DISORDER
     Route: 058
     Dates: start: 20180520

REACTIONS (3)
  - Thinking abnormal [None]
  - Cough [None]
  - Dizziness [None]

NARRATIVE: CASE EVENT DATE: 20180520
